FAERS Safety Report 9984295 (Version 1)
Quarter: 2014Q1

REPORT INFORMATION
  Report Type: Spontaneous
  Country: US (occurrence: US)
  Receive Date: 20140307
  Receipt Date: 20140307
  Transmission Date: 20141002
  Serious: No
  Sender: FDA-Public Use
  Company Number: US-ABBVIE-13P-163-1181479-00

PATIENT
  Age: 45 Year
  Sex: Female
  Weight: 85.35 kg

DRUGS (4)
  1. HUMIRA [Suspect]
     Indication: COLITIS ULCERATIVE
     Dates: start: 201304, end: 201311
  2. HUMIRA [Suspect]
     Indication: COLITIS ULCERATIVE
     Dates: start: 20131201
  3. ZOLOFT [Concomitant]
     Indication: OBSESSIVE-COMPULSIVE DISORDER
  4. MULTIVITAMIN [Concomitant]
     Indication: VITAMIN SUPPLEMENTATION

REACTIONS (9)
  - Feeling hot [Recovered/Resolved]
  - Dizziness [Recovered/Resolved]
  - Dizziness [Recovered/Resolved]
  - Drug administered at inappropriate site [Recovered/Resolved]
  - Feeling hot [Not Recovered/Not Resolved]
  - Dizziness [Not Recovered/Not Resolved]
  - Dizziness [Not Recovered/Not Resolved]
  - Hyperhidrosis [Recovered/Resolved]
  - Hyperhidrosis [Not Recovered/Not Resolved]
